FAERS Safety Report 18313732 (Version 2)
Quarter: 2020Q3

REPORT INFORMATION
  Report Type: Spontaneous
  Country: US (occurrence: US)
  Receive Date: 20200925
  Receipt Date: 20200928
  Transmission Date: 20201103
  Serious: No
  Sender: FDA-Public Use
  Company Number: US-PFIZER INC-2020366718

PATIENT
  Sex: Female

DRUGS (1)
  1. EFFEXOR XR [Suspect]
     Active Substance: VENLAFAXINE HYDROCHLORIDE
     Indication: SCAR PAIN
     Dosage: UNK

REACTIONS (5)
  - Headache [Unknown]
  - Migraine [Unknown]
  - Product use in unapproved indication [Unknown]
  - Drug effective for unapproved indication [Unknown]
  - Off label use [Unknown]
